FAERS Safety Report 6293237-0 (Version None)
Quarter: 2009Q3

REPORT INFORMATION
  Report Type: 
  Country: None (occurrence: None)
  Receive Date: 20090731
  Receipt Date: 20090727
  Transmission Date: 20100115
  Serious: No
  Sender: FDA-Public Use
  Company Number: US-B.I. PHARMACEUTICALS,INC./RIDGEFIELD-2009-BP-08871BP

PATIENT
  Sex: Female

DRUGS (5)
  1. SPIRIVA [Suspect]
     Indication: BRONCHOPNEUMONIA
     Dosage: 18 MCG
     Route: 055
     Dates: start: 20090301, end: 20090723
  2. SPIRIVA [Suspect]
     Indication: CHRONIC OBSTRUCTIVE PULMONARY DISEASE
  3. COMBIVENT [Suspect]
     Indication: CHRONIC OBSTRUCTIVE PULMONARY DISEASE
     Dosage: 4 PUF
     Route: 055
     Dates: start: 20090723
  4. ALPHAGAN [Concomitant]
     Indication: GLAUCOMA
  5. TRAVATAN [Concomitant]
     Indication: GLAUCOMA

REACTIONS (1)
  - URINARY RETENTION [None]
